FAERS Safety Report 14281491 (Version 2)
Quarter: 2018Q3

REPORT INFORMATION
  Report Type: Spontaneous
  Country: DE (occurrence: DE)
  Receive Date: 20171213
  Receipt Date: 20180906
  Transmission Date: 20181010
  Serious: Yes (Hospitalization, Other)
  Sender: FDA-Public Use
  Company Number: DE-SA-2017SA244683

PATIENT
  Age: 80 Year
  Sex: Male
  Weight: 82 kg

DRUGS (36)
  1. OXALIPLATIN. [Suspect]
     Active Substance: OXALIPLATIN
     Indication: COLORECTAL CANCER METASTATIC
     Dosage: 167 MG,Q3W
     Route: 042
     Dates: start: 20160413, end: 20160413
  2. AVASTIN [Suspect]
     Active Substance: BEVACIZUMAB
     Dosage: 495 MG, Q3W
     Dates: start: 20160321, end: 20160321
  3. SIMVASTATIN. [Suspect]
     Active Substance: SIMVASTATIN
     Dosage: 495 MG,Q3W
     Route: 042
     Dates: start: 20160413, end: 20160413
  4. DIMENHYDRINATE. [Concomitant]
     Active Substance: DIMENHYDRINATE
     Indication: NAUSEA
  5. DEXAMETHASONE. [Concomitant]
     Active Substance: DEXAMETHASONE
     Indication: NAUSEA
     Dosage: 8 MG,UNK
     Route: 042
     Dates: start: 20160413
  6. XELODA [Suspect]
     Active Substance: CAPECITABINE
     Dosage: 2500 MG,Q3W
     Route: 048
     Dates: start: 20160118
  7. SIMVASTATIN. [Suspect]
     Active Substance: SIMVASTATIN
     Indication: COLORECTAL CANCER METASTATIC
     Dosage: 615 MG,Q3W
     Route: 042
     Dates: start: 20150924, end: 20150924
  8. SIMVASTATIN. [Suspect]
     Active Substance: SIMVASTATIN
     Dosage: 615 MG,Q3W
     Route: 042
     Dates: start: 20151105, end: 20151105
  9. IRINOTECAN [Concomitant]
     Active Substance: IRINOTECAN
     Dosage: 220.8 MG,Q3W
     Route: 042
     Dates: start: 20160229
  10. ATROPINE. [Concomitant]
     Active Substance: ATROPINE
     Indication: DIARRHOEA
     Dosage: .25 MG,Q3W
     Route: 058
     Dates: start: 20150924, end: 20150924
  11. OXALIPLATIN. [Suspect]
     Active Substance: OXALIPLATIN
     Dosage: 167 MG,Q3W
     Route: 042
     Dates: start: 20160504, end: 20160504
  12. XELODA [Suspect]
     Active Substance: CAPECITABINE
     Dosage: 3000 MG,Q3W
     Route: 048
     Dates: start: 20151118, end: 20151118
  13. GLIMEPIRIDE. [Concomitant]
     Active Substance: GLIMEPIRIDE
     Indication: DIABETES MELLITUS
     Dosage: 2 MG,QD
     Route: 048
     Dates: start: 2011, end: 20151127
  14. XELODA [Suspect]
     Active Substance: CAPECITABINE
     Dosage: 2000 MG,Q3W
     Route: 048
     Dates: start: 20160609
  15. AVASTIN [Suspect]
     Active Substance: BEVACIZUMAB
     Indication: COLORECTAL CANCER METASTATIC
     Dosage: 615 MG, Q3W
     Route: 042
     Dates: start: 20151105, end: 20151105
  16. SIMVASTATIN. [Suspect]
     Active Substance: SIMVASTATIN
     Dosage: 495 MG,Q3W
     Route: 042
     Dates: start: 20160321, end: 20160321
  17. IRINOTECAN [Concomitant]
     Active Substance: IRINOTECAN
     Indication: COLORECTAL CANCER
     Dosage: 323.2 MG,Q3W
     Route: 042
     Dates: start: 20150924, end: 20150924
  18. FORTECORTIN [DEXAMETHASONE] [Concomitant]
     Indication: VOMITING
  19. KANAKION [Concomitant]
     Dosage: 10 MG
     Route: 042
     Dates: start: 20151124
  20. OXALIPLATIN. [Suspect]
     Active Substance: OXALIPLATIN
     Dosage: 120 MG,Q3W
     Route: 042
     Dates: start: 20160609, end: 20160609
  21. XELODA [Suspect]
     Active Substance: CAPECITABINE
     Indication: COLORECTAL CANCER METASTATIC
     Dosage: 3000 MG,Q3W
     Route: 048
     Dates: start: 20150924, end: 20151118
  22. IRINOTECAN [Concomitant]
     Active Substance: IRINOTECAN
     Dosage: 220 MG,Q3W
     Route: 042
     Dates: start: 20160208, end: 20160208
  23. KEVATRIL [Concomitant]
     Active Substance: GRANISETRON HYDROCHLORIDE
     Indication: NAUSEA
     Dosage: 1 DF,Q3W
     Route: 042
     Dates: start: 20150924, end: 20160321
  24. FOSINORM [Concomitant]
     Indication: HYPERTENSION
     Dosage: .5 DF,QD
     Route: 048
     Dates: start: 2001
  25. SIMVASTATIN. [Concomitant]
     Active Substance: SIMVASTATIN
     Indication: HYPERCHOLESTEROLAEMIA
     Dosage: 10 MG,QD
     Route: 048
     Dates: start: 2015, end: 20151119
  26. ATROPINE. [Concomitant]
     Active Substance: ATROPINE
     Indication: CHOLINERGIC SYNDROME
     Dosage: .25 MG,Q3W
     Route: 058
     Dates: start: 20160321, end: 20160321
  27. ENOXAPARIN [Concomitant]
     Active Substance: ENOXAPARIN
     Indication: THROMBOSIS
     Dosage: .4 ML,UNK
     Route: 058
     Dates: start: 20151122, end: 20151202
  28. IRINOTECAN [Concomitant]
     Active Substance: IRINOTECAN
     Dosage: 323.2 MG,Q3W
     Route: 042
     Dates: start: 20151105, end: 20151105
  29. AMLODIPINE [Concomitant]
     Active Substance: AMLODIPINE BESYLATE
     Indication: HYPERTENSION
     Dosage: 7.5 MG,QD
     Route: 048
     Dates: start: 201407
  30. AVASTIN [Suspect]
     Active Substance: BEVACIZUMAB
     Dosage: 615 UNK
     Route: 042
     Dates: start: 20150924, end: 20150924
  31. AVASTIN [Suspect]
     Active Substance: BEVACIZUMAB
     Dosage: 495 MG, Q3W
     Dates: start: 20160413, end: 20160413
  32. FORTECORTIN [DEXAMETHASONE] [Concomitant]
     Indication: NAUSEA
     Dosage: 10 MG,Q3W
     Route: 042
     Dates: start: 20150924, end: 20160321
  33. DIMENHYDRINATE. [Concomitant]
     Active Substance: DIMENHYDRINATE
     Indication: VOMITING
     Dosage: 8 MG,UNK
     Route: 042
     Dates: start: 20160413
  34. ASPIRIN. [Concomitant]
     Active Substance: ASPIRIN
     Dosage: 100 MG,QD
     Route: 048
     Dates: start: 2001
  35. GRANISETRON [Concomitant]
     Active Substance: GRANISETRON
     Indication: NAUSEA
     Dosage: 1 MG,UNK
     Route: 042
     Dates: start: 20160413
  36. KANAKION [Concomitant]
     Dosage: 10 UNK
     Route: 042
     Dates: start: 20151120

REACTIONS (8)
  - Vomiting [Recovered/Resolved]
  - Diarrhoea [Recovered/Resolved]
  - Diarrhoea [Recovered/Resolved]
  - Proteinuria [Not Recovered/Not Resolved]
  - Hypokalaemia [Recovered/Resolved]
  - Decreased appetite [Recovered/Resolved]
  - Weight decreased [Not Recovered/Not Resolved]
  - Dehydration [Recovered/Resolved]

NARRATIVE: CASE EVENT DATE: 20150925
